FAERS Safety Report 11795743 (Version 1)
Quarter: 2015Q4

REPORT INFORMATION
  Report Type: Spontaneous
  Country: FR (occurrence: FR)
  Receive Date: 20151202
  Receipt Date: 20151202
  Transmission Date: 20160305
  Serious: Yes (Hospitalization)
  Sender: FDA-Public Use
  Company Number: FR-009507513-1511FRA014210

PATIENT
  Age: 61 Year
  Sex: Female

DRUGS (13)
  1. OXYNORM [Suspect]
     Active Substance: OXYCODONE HYDROCHLORIDE
     Route: 048
  2. OXYCONTIN [Suspect]
     Active Substance: OXYCODONE HYDROCHLORIDE
     Route: 048
  3. IRINOTECAN HYDROCHLORIDE. [Concomitant]
     Active Substance: IRINOTECAN HYDROCHLORIDE
  4. DEBRIDAT [Concomitant]
     Active Substance: TRIMEBUTINE MALEATE
  5. SOLUPRED [Concomitant]
     Active Substance: PREDNISOLONE
  6. LEXOMIL [Concomitant]
     Active Substance: BROMAZEPAM
  7. TIORFAN [Concomitant]
     Active Substance: RACECADOTRIL
  8. ACETAMINOPHEN. [Concomitant]
     Active Substance: ACETAMINOPHEN
  9. INVANZ [Suspect]
     Active Substance: ERTAPENEM SODIUM
     Indication: PYELONEPHRITIS
     Dosage: 1 G, QD
     Dates: start: 201510
  10. TRIFLUCAN [Concomitant]
     Active Substance: FLUCONAZOLE
  11. XYLOCAINE [Concomitant]
     Active Substance: LIDOCAINE HYDROCHLORIDE
  12. SPASFON [Concomitant]
     Active Substance: PHLOROGLUCINOL
  13. FLUOROURACIL. [Concomitant]
     Active Substance: FLUOROURACIL

REACTIONS (3)
  - Diarrhoea [Unknown]
  - Hallucination [Unknown]
  - Hypokalaemia [Recovered/Resolved]

NARRATIVE: CASE EVENT DATE: 20151101
